FAERS Safety Report 17174284 (Version 1)
Quarter: 2019Q4

REPORT INFORMATION
  Report Type: Spontaneous
  Country: US (occurrence: US)
  Receive Date: 20191218
  Receipt Date: 20191218
  Transmission Date: 20200122
  Serious: Yes (Hospitalization, Other)
  Sender: FDA-Public Use
  Company Number: None

PATIENT
  Age: 58 Year
  Sex: Male

DRUGS (6)
  1. ENTECAVIR. [Suspect]
     Active Substance: ENTECAVIR
     Indication: LIVER TRANSPLANT
     Route: 048
     Dates: start: 20180120
  2. ASPIRIN. [Concomitant]
     Active Substance: ASPIRIN
  3. RISAQUAD [Concomitant]
  4. OXYCODONE [Concomitant]
     Active Substance: OXYCODONE
  5. TACROLIMUS. [Concomitant]
     Active Substance: TACROLIMUS
  6. LEVOTHYROXIN [Concomitant]
     Active Substance: LEVOTHYROXINE

REACTIONS (3)
  - Hernia [None]
  - Product dose omission [None]
  - Gastrointestinal disorder [None]
